FAERS Safety Report 5369876-8 (Version None)
Quarter: 2007Q2

REPORT INFORMATION
  Report Type: 
  Country: None (occurrence: None)
  Receive Date: 20070621
  Receipt Date: 20070608
  Transmission Date: 20071010
  Serious: Yes (Other)
  Sender: FDA-Public Use
  Company Number: 2007RR-08019

PATIENT
  Age: 63 Year
  Sex: Female

DRUGS (5)
  1. GABAPENTIN [Suspect]
     Dosage: 100 MG, BID, UNKNOWN
  2. LYRICA [Suspect]
     Dosage: 75 MG, BID, ORAL
     Route: 048
     Dates: start: 20060830
  3. BACLOFEN [Concomitant]
  4. OXYBUTYNIN [Concomitant]
  5. SIMVASTATIN [Concomitant]

REACTIONS (2)
  - DRUG INEFFECTIVE [None]
  - JAUNDICE [None]
